FAERS Safety Report 12209964 (Version 1)
Quarter: 2016Q1

REPORT INFORMATION
  Report Type: Spontaneous
  Country: GB (occurrence: GB)
  Receive Date: 20160325
  Receipt Date: 20160325
  Transmission Date: 20160526
  Serious: Yes (Other)
  Sender: FDA-Public Use
  Company Number: GB-TEVA-645307ACC

PATIENT
  Age: 67 Year
  Sex: Female

DRUGS (4)
  1. MIRTAZAPINE. [Suspect]
     Active Substance: MIRTAZAPINE
     Indication: DEPRESSION
     Dosage: 15 MILLIGRAM DAILY; 15 MG; AT NIGHT.
     Route: 048
     Dates: start: 20160119, end: 20160211
  2. HYPROMELLOSE [Concomitant]
     Active Substance: HYPROMELLOSES
  3. DOUBLEBASE [Concomitant]
     Active Substance: ISOPROPYL MYRISTATE\PARAFFIN
  4. OVESTIN [Concomitant]
     Active Substance: ESTRIOL

REACTIONS (2)
  - Lip blister [Recovered/Resolved]
  - Tongue blistering [Recovered/Resolved]

NARRATIVE: CASE EVENT DATE: 20160119
